FAERS Safety Report 12471153 (Version 3)
Quarter: 2016Q4

REPORT INFORMATION
  Report Type: Report from Study
  Country: DE (occurrence: DE)
  Receive Date: 20160616
  Receipt Date: 20161110
  Transmission Date: 20170207
  Serious: Yes (Hospitalization, Other)
  Sender: FDA-Public Use
  Company Number: DE-ROCHE-1679413

PATIENT
  Sex: Female
  Weight: 64 kg

DRUGS (2)
  1. TRASTUZUMAB [Suspect]
     Active Substance: TRASTUZUMAB
     Indication: BREAST CANCER
     Route: 042
     Dates: start: 20151104, end: 20151104
  2. TRASTUZUMAB [Suspect]
     Active Substance: TRASTUZUMAB
     Indication: HER-2 POSITIVE BREAST CANCER
     Route: 058
     Dates: start: 20151125

REACTIONS (9)
  - Atrial fibrillation [Recovered/Resolved]
  - Arthralgia [Unknown]
  - Erythema [Unknown]
  - Mitral valve incompetence [Not Recovered/Not Resolved]
  - Tricuspid valve incompetence [Not Recovered/Not Resolved]
  - Myalgia [Unknown]
  - Pruritus [Unknown]
  - Onychoclasis [Unknown]
  - Pain [Unknown]

NARRATIVE: CASE EVENT DATE: 20151126
